FAERS Safety Report 8539742-5 (Version None)
Quarter: 2012Q3

REPORT INFORMATION
  Report Type: 
  Country: None (occurrence: None)
  Receive Date: 20120726
  Receipt Date: 20120306
  Transmission Date: 20120928
  Serious: No
  Sender: FDA-Public Use
  Company Number: US-ASTRAZENECA-2010SE11648

PATIENT
  Age: 33 Year
  Sex: Male

DRUGS (2)
  1. SEROQUEL [Suspect]
     Route: 048
  2. SEROQUEL [Suspect]
     Route: 048

REACTIONS (7)
  - GASTRIC DISORDER [None]
  - MALAISE [None]
  - APHAGIA [None]
  - AFFECT LABILITY [None]
  - INSOMNIA [None]
  - LIMB INJURY [None]
  - DRUG DOSE OMISSION [None]
